FAERS Safety Report 6861416-7 (Version None)
Quarter: 2010Q3

REPORT INFORMATION
  Report Type: 
  Country: None (occurrence: None)
  Receive Date: 20100716
  Receipt Date: 20100702
  Transmission Date: 20110219
  Serious: Yes (Life-Threatening, Other)
  Sender: FDA-Public Use
  Company Number: 013806

PATIENT
  Sex: Female

DRUGS (3)
  1. LORTAB [Suspect]
     Dates: start: 20100526
  2. LAMICTAL [Suspect]
     Indication: DEPRESSION
     Dosage: ORAL
     Dates: end: 20100525
  3. AZITHROMYCIN [Concomitant]

REACTIONS (5)
  - ANXIETY [None]
  - DRUG INTERACTION [None]
  - FEELING ABNORMAL [None]
  - INSOMNIA [None]
  - PRURITUS [None]
